FAERS Safety Report 15445736 (Version 1)
Quarter: 2018Q3

REPORT INFORMATION
  Report Type: Spontaneous
  Country: US (occurrence: US)
  Receive Date: 20180928
  Receipt Date: 20180928
  Transmission Date: 20181010
  Serious: No
  Sender: FDA-Public Use
  Company Number: US-AMGEN-USASP2018069286

PATIENT
  Age: 70 Year
  Sex: Female

DRUGS (2)
  1. ATORVASTATIN [Concomitant]
     Active Substance: ATORVASTATIN
     Dosage: UNK
  2. PROLIA [Suspect]
     Active Substance: DENOSUMAB
     Indication: OSTEOPENIA
     Dosage: 60 MG, Q6MO
     Route: 065
     Dates: start: 20170502

REACTIONS (6)
  - Muscle fatigue [Unknown]
  - Fall [Unknown]
  - Off label use [Unknown]
  - Muscle spasms [Unknown]
  - Musculoskeletal pain [Unknown]
  - Joint noise [Not Recovered/Not Resolved]

NARRATIVE: CASE EVENT DATE: 20170502
